FAERS Safety Report 23631157 (Version 4)
Quarter: 2024Q3

REPORT INFORMATION
  Report Type: Spontaneous
  Country: AU (occurrence: AU)
  Receive Date: 20240314
  Receipt Date: 20240905
  Transmission Date: 20241017
  Serious: Yes (Other)
  Sender: NOVARTIS
  Company Number: AU-002147023-NVSC2024AU054898

PATIENT
  Age: 33 Year
  Sex: Female

DRUGS (1)
  1. GILENYA [Suspect]
     Active Substance: FINGOLIMOD HYDROCHLORIDE
     Indication: Relapsing multiple sclerosis
     Dosage: UNK
     Route: 065
     Dates: start: 201707

REACTIONS (3)
  - Sensory disturbance [Recovered/Resolved]
  - Tumefactive multiple sclerosis [Recovered/Resolved]
  - Tumefactive multiple sclerosis [Unknown]

NARRATIVE: CASE EVENT DATE: 20150101
